FAERS Safety Report 5556582-X (Version None)
Quarter: 2007Q4

REPORT INFORMATION
  Report Type: 
  Country: None (occurrence: None)
  Receive Date: 20071213
  Receipt Date: 20070907
  Transmission Date: 20080405
  Serious: No
  Sender: FDA-Public Use
  Company Number: US-AMGEN-KDL242416

PATIENT
  Sex: Female

DRUGS (5)
  1. ENBREL [Suspect]
     Indication: PSORIATIC ARTHROPATHY
     Route: 058
     Dates: start: 20070601
  2. ENBREL [Suspect]
     Indication: PSORIASIS
  3. METHOTREXATE [Concomitant]
     Route: 048
     Dates: start: 20020101
  4. PLAQUENIL [Concomitant]
     Route: 048
     Dates: start: 20020101
  5. SULFASALAZINE [Concomitant]
     Dates: start: 20020101

REACTIONS (1)
  - RASH ERYTHEMATOUS [None]
